FAERS Safety Report 6551362-0 (Version None)
Quarter: 2010Q1

REPORT INFORMATION
  Report Type: 
  Country: None (occurrence: None)
  Receive Date: 20100120
  Receipt Date: 20100105
  Transmission Date: 20100710
  Serious: Yes (Hospitalization, Other)
  Sender: FDA-Public Use
  Company Number: AUR-APL-2009-01369

PATIENT
  Age: 69 Year
  Sex: Female

DRUGS (8)
  1. SIMVASTATIN [Suspect]
     Indication: BLOOD CHOLESTEROL INCREASED
     Dosage: 20 MG, DAILY, ORAL
     Route: 048
     Dates: start: 20050101
  2. CLOZARIL [Suspect]
     Indication: SCHIZOPHRENIA
     Dosage: 400MG, DAILY, ORAL
     Route: 048
     Dates: start: 19990120
  3. ACETYLSALICYLIC ACID [Concomitant]
  4. FLUTICASONE PROPIONATE [Concomitant]
  5. METFORMIN HCL [Concomitant]
  6. OXYBUTYNIN [Concomitant]
  7. QUETIAPINE [Concomitant]
  8. ALBUTEROL [Concomitant]

REACTIONS (4)
  - BLOOD ALKALINE PHOSPHATASE INCREASED [None]
  - CARDIAC ENZYMES INCREASED [None]
  - PERICARDIAL EFFUSION [None]
  - RESPIRATORY DISORDER [None]
